FAERS Safety Report 12603528 (Version 1)
Quarter: 2016Q3

REPORT INFORMATION
  Report Type: Report from Study
  Country: IN (occurrence: IN)
  Receive Date: 20160728
  Receipt Date: 20160728
  Transmission Date: 20161109
  Serious: Yes (Death)
  Sender: FDA-Public Use
  Company Number: IN-009507513-1607IND012042

PATIENT
  Age: 56 Year
  Sex: Female
  Weight: 46 kg

DRUGS (1)
  1. JANUMET [Suspect]
     Active Substance: METFORMIN HYDROCHLORIDE\SITAGLIPTIN PHOSPHATE
     Indication: DIABETES MELLITUS
     Dosage: 1 DF, QD (STRENGTH: 100/1000 (UNIT UNSPECIFIED))
     Route: 048

REACTIONS (1)
  - Hypoglycaemia [Fatal]
